FAERS Safety Report 16584848 (Version 1)
Quarter: 2019Q3

REPORT INFORMATION
  Report Type: Spontaneous
  Country: DE (occurrence: DE)
  Receive Date: 20190717
  Receipt Date: 20190717
  Transmission Date: 20191004
  Serious: Yes (Hospitalization)
  Sender: FDA-Public Use
  Company Number: DE-ELI_LILLY_AND_COMPANY-DE201907003285

PATIENT
  Age: 81 Year
  Sex: Female

DRUGS (6)
  1. GEMZAR [Suspect]
     Active Substance: GEMCITABINE HYDROCHLORIDE
     Indication: PRODUCT USED FOR UNKNOWN INDICATION
     Dosage: UNK, UNKNOWN
     Route: 065
  2. SIMVASTATIN. [Concomitant]
     Active Substance: SIMVASTATIN
     Dosage: 40 MG, 0-0-1-0
  3. BRIMONIDINE [Concomitant]
     Active Substance: BRIMONIDINE TARTRATE
     Dosage: NK MG, 1-1-1-0 BEIDE AUGEN
     Route: 047
  4. DORZO VISION [Concomitant]
     Active Substance: DORZOLAMIDE HYDROCHLORIDE
     Dosage: NK MG, 1-0-1-0 BEIDE AUGEN
     Route: 047
  5. VIDISIC [Concomitant]
     Dosage: UNK UNK, UNKNOWN
     Route: 047
  6. GANFORT [Concomitant]
     Active Substance: BIMATOPROST\TIMOLOL
     Dosage: NK MG, 1-0-0-0 RE AUGE
     Route: 047

REACTIONS (2)
  - Hemiparesis [Unknown]
  - Nausea [Unknown]
